FAERS Safety Report 10043450 (Version 1)
Quarter: 2014Q1

REPORT INFORMATION
  Report Type: Spontaneous
  Country: US (occurrence: US)
  Receive Date: 20140328
  Receipt Date: 20140328
  Transmission Date: 20141002
  Serious: No
  Sender: FDA-Public Use
  Company Number: US-PFIZER INC-2014085659

PATIENT
  Sex: Female

DRUGS (2)
  1. LEVOXYL [Suspect]
     Dosage: UNK
     Dates: start: 2000
  2. LEVOXYL [Suspect]
     Dosage: UNK
     Dates: start: 20140227

REACTIONS (4)
  - Muscle spasms [Unknown]
  - Muscle strain [Unknown]
  - Feeling hot [Unknown]
  - Pruritus [Unknown]
